FAERS Safety Report 11615027 (Version 2)
Quarter: 2015Q4

REPORT INFORMATION
  Report Type: Spontaneous
  Country: US (occurrence: US)
  Receive Date: 20151009
  Receipt Date: 20151230
  Transmission Date: 20160304
  Serious: Yes (Other)
  Sender: FDA-Public Use
  Company Number: US-JNJFOC-20151002380

PATIENT
  Sex: Female
  Weight: 68.04 kg

DRUGS (17)
  1. REMICADE [Suspect]
     Active Substance: INFLIXIMAB
     Indication: COLITIS ULCERATIVE
     Route: 042
     Dates: start: 20150803
  2. IMURAN [Suspect]
     Active Substance: AZATHIOPRINE
     Indication: PRODUCT USED FOR UNKNOWN INDICATION
     Route: 048
     Dates: start: 20130221, end: 20140926
  3. PREDNISONE. [Suspect]
     Active Substance: PREDNISONE
     Indication: PRODUCT USED FOR UNKNOWN INDICATION
     Dosage: TAKE 4 A DAY BY MOUTH FOR 1 WEEK, 3 A DAY FOR 1WEEK, 2  A DAY FOR 1 WEEK THEN ONE A DAY FOR 1 WEEK.
     Route: 065
     Dates: start: 20130215, end: 20130417
  4. FLAGYL [Concomitant]
     Active Substance: METRONIDAZOLE\METRONIDAZOLE HYDROCHLORIDE
     Route: 048
     Dates: start: 20121106, end: 20121218
  5. FERROUS GLUCONATE [Concomitant]
     Active Substance: FERROUS GLUCONATE
     Route: 048
     Dates: start: 20130611, end: 20131001
  6. ENTOCORT [Concomitant]
     Active Substance: BUDESONIDE
     Route: 048
     Dates: start: 20121015, end: 20121218
  7. FISH OIL [Concomitant]
     Active Substance: FISH OIL
     Indication: NUTRITIONAL SUPPLEMENTATION
     Route: 048
     Dates: start: 20130222
  8. PREDNISONE. [Suspect]
     Active Substance: PREDNISONE
     Indication: PRODUCT USED FOR UNKNOWN INDICATION
     Dosage: 4 A DAY BY MOUTH FOR A WEEK,2 A DAY FOR A WEEK THEN ONE A DAY FOR A WEEK
     Route: 065
     Dates: start: 20130816, end: 20131001
  9. FLORASTOR [Concomitant]
     Active Substance: SACCHAROMYCES CEREVISIAE
     Indication: GASTROINTESTINAL DISORDER
     Route: 048
     Dates: start: 201302
  10. PROBIOTIC [Concomitant]
     Active Substance: PROBIOTICS NOS
     Route: 048
     Dates: start: 20130222
  11. CANASA [Concomitant]
     Active Substance: MESALAMINE
     Dosage: INSERT ONE AT BEDTIME
     Route: 054
     Dates: start: 20120817, end: 20121218
  12. FLORASTOR [Concomitant]
     Active Substance: SACCHAROMYCES CEREVISIAE
     Route: 065
     Dates: start: 20130222
  13. REMICADE [Suspect]
     Active Substance: INFLIXIMAB
     Indication: COLITIS ULCERATIVE
     Route: 042
     Dates: start: 20130108
  14. REMICADE [Suspect]
     Active Substance: INFLIXIMAB
     Indication: COLITIS ULCERATIVE
     Dosage: RECEIVED TOTAL 19 INFUSIONS, 5MG /KG
     Route: 042
     Dates: start: 20121115
  15. PREDNISONE. [Suspect]
     Active Substance: PREDNISONE
     Indication: PRODUCT USED FOR UNKNOWN INDICATION
     Dosage: 4 PILLS A DAY FOR 10 DAYS THEN 2 PILLS A DAY FOR 10 DAYS THEN 1 PILL A DAY FOR 10 DAYS
     Route: 065
     Dates: start: 20130104, end: 20130222
  16. ASACOL [Concomitant]
     Active Substance: MESALAMINE
     Route: 048
     Dates: start: 20120821, end: 20121218
  17. HYDROCORTISONE. [Concomitant]
     Active Substance: HYDROCORTISONE
     Dosage: 100 MG/60 ML, ONE RECTALLY AT BED TIME
     Route: 054
     Dates: start: 20120827, end: 20121218

REACTIONS (2)
  - Metastatic neoplasm [Not Recovered/Not Resolved]
  - Invasive ductal breast carcinoma [Not Recovered/Not Resolved]

NARRATIVE: CASE EVENT DATE: 2015
